FAERS Safety Report 6745391-1 (Version None)
Quarter: 2010Q2

REPORT INFORMATION
  Report Type: 
  Country: None (occurrence: None)
  Receive Date: 20100528
  Receipt Date: 20100517
  Transmission Date: 20101027
  Serious: No
  Sender: FDA-Public Use
  Company Number: 2008BI034410

PATIENT
  Age: 49 Year
  Sex: Female

DRUGS (1)
  1. TYSABRI [Suspect]
     Indication: MULTIPLE SCLEROSIS
     Route: 042
     Dates: start: 20080717

REACTIONS (22)
  - ANIMAL BITE [None]
  - ASTHENIA [None]
  - BALANCE DISORDER [None]
  - BLOOD POTASSIUM DECREASED [None]
  - COGNITIVE DISORDER [None]
  - DEHYDRATION [None]
  - DEPRESSION [None]
  - DEPRESSIVE SYMPTOM [None]
  - DRUG EFFECT DECREASED [None]
  - DYSPEPSIA [None]
  - FALL [None]
  - FIBROMYALGIA [None]
  - HYPOAESTHESIA [None]
  - LOSS OF CONSCIOUSNESS [None]
  - MULTIPLE SCLEROSIS RELAPSE [None]
  - NAUSEA [None]
  - SENSATION OF HEAVINESS [None]
  - SLUGGISHNESS [None]
  - TENDONITIS [None]
  - VISUAL IMPAIRMENT [None]
  - VITAMIN D DECREASED [None]
  - VULVOVAGINAL MYCOTIC INFECTION [None]
